FAERS Safety Report 8140559-4 (Version None)
Quarter: 2012Q1

REPORT INFORMATION
  Report Type: 
  Country: None (occurrence: None)
  Receive Date: 20120216
  Receipt Date: 20120209
  Transmission Date: 20120608
  Serious: Yes (Other)
  Sender: FDA-Public Use
  Company Number: US-PFIZER INC-2012006531

PATIENT
  Sex: Female

DRUGS (1)
  1. XALATAN [Suspect]
     Indication: GLAUCOMA
     Dosage: UNK
     Route: 047

REACTIONS (5)
  - BALANCE DISORDER [None]
  - TREMOR [None]
  - VISUAL IMPAIRMENT [None]
  - HEARING IMPAIRED [None]
  - CEREBROVASCULAR ACCIDENT [None]
